FAERS Safety Report 14379709 (Version 1)
Quarter: 2018Q1

REPORT INFORMATION
  Report Type: Spontaneous
  Country: US (occurrence: US)
  Receive Date: 20180111
  Receipt Date: 20180111
  Transmission Date: 20180509
  Serious: Yes (Hospitalization)
  Sender: FDA-Public Use
  Company Number: None

PATIENT
  Age: 9 Year
  Sex: Male
  Weight: 49.5 kg

DRUGS (8)
  1. METHOTREXATE. [Suspect]
     Active Substance: METHOTREXATE
     Dates: end: 20171219
  2. THIOGUANINE (6-TG) [Suspect]
     Active Substance: THIOGUANINE ANHYDROUS
     Dates: end: 20171225
  3. DOXORUBICIN HYDROCHLORIDE. [Suspect]
     Active Substance: DOXORUBICIN HYDROCHLORIDE
     Dates: end: 20171114
  4. DEXAMETHASONE. [Suspect]
     Active Substance: DEXAMETHASONE
     Dates: end: 20171120
  5. VINCRISTINE SULFATE. [Suspect]
     Active Substance: VINCRISTINE SULFATE
     Dates: end: 20171227
  6. CYCLOPHOSPHAMIDE. [Suspect]
     Active Substance: CYCLOPHOSPHAMIDE
     Dates: end: 20171212
  7. CYTARABINE. [Suspect]
     Active Substance: CYTARABINE
     Dates: end: 20171222
  8. ONCASPAR [Suspect]
     Active Substance: PEGASPARGASE
     Dates: end: 20171227

REACTIONS (21)
  - Apnoea [None]
  - Pulmonary congestion [None]
  - Febrile neutropenia [None]
  - Infusion site extravasation [None]
  - Blood creatinine increased [None]
  - Hypertension [None]
  - Vomiting [None]
  - Focal dyscognitive seizures [None]
  - Blood urea increased [None]
  - Thrombocytopenia [None]
  - Unresponsive to stimuli [None]
  - Upper respiratory tract infection [None]
  - General symptom [None]
  - Heart rate increased [None]
  - Bacterial sepsis [None]
  - Septic shock [None]
  - Needle issue [None]
  - Escherichia test positive [None]
  - Fluid overload [None]
  - Pleural effusion [None]
  - Posterior reversible encephalopathy syndrome [None]

NARRATIVE: CASE EVENT DATE: 20180101
